FAERS Safety Report 24424320 (Version 1)
Quarter: 2024Q4

REPORT INFORMATION
  Report Type: Spontaneous
  Country: US (occurrence: US)
  Receive Date: 20241010
  Receipt Date: 20241010
  Transmission Date: 20250115
  Serious: No
  Sender: NOVAST
  Company Number: US-NOVAST LABORATORIES INC.-2023NOV000308

PATIENT

DRUGS (1)
  1. LARIN FE 1.5/30 [Suspect]
     Active Substance: ETHINYL ESTRADIOL\NORETHINDRONE ACETATE
     Indication: Contraception
     Dosage: MILLIGRAM, QD
     Route: 048

REACTIONS (2)
  - Product dose omission issue [Unknown]
  - Product quality issue [Unknown]

NARRATIVE: CASE EVENT DATE: 20230826
